FAERS Safety Report 8839595 (Version 1)
Quarter: 2012Q4

REPORT INFORMATION
  Report Type: 
  Country: BR (occurrence: BR)
  Receive Date: 20121015
  Receipt Date: 20121015
  Transmission Date: 20130627
  Serious: Yes (Other)
  Sender: FDA-Public Use
  Company Number: PHHY2012BR088536

PATIENT
  Sex: Male

DRUGS (10)
  1. DIOVAN AMLO FIX [Suspect]
     Indication: CARDIAC DISORDER
     Dosage: 1 DF, per day
     Route: 048
     Dates: start: 2000
  2. ONBRIZE [Suspect]
     Indication: DYSPNOEA
     Dosage: 1 DF, QD
     Dates: start: 201207
  3. COUMADIN [Concomitant]
     Indication: BLOOD DISORDER
     Dosage: 1 DF, QD
     Route: 048
     Dates: start: 1999
  4. METFORMIN [Concomitant]
     Indication: DIABETES MELLITUS
     Dosage: 1 DF, BID
     Route: 048
     Dates: start: 1999
  5. EUPROSTATIN [Concomitant]
     Indication: PROSTATIC DISORDER
     Dosage: 1 DF, BID
     Route: 048
     Dates: start: 1999
  6. DIGOXIN [Concomitant]
     Indication: CARDIAC DISORDER
     Dosage: 1 DF, QD
     Route: 048
  7. DILTIAZEM [Concomitant]
     Indication: CARDIAC DISORDER
     Dosage: 1 DF, QD
     Route: 048
  8. SPIRONOLACTONE [Concomitant]
     Indication: CARDIAC DISORDER
     Dosage: 1 DF, QD
     Route: 048
  9. SINVASCOR [Concomitant]
     Indication: CARDIAC DISORDER
     Dosage: 1 DF, QD
     Route: 048
  10. ALENDRONATE SODIUM [Concomitant]
     Indication: BONE DISORDER
     Dosage: 1 DF, week
     Route: 048
     Dates: start: 2010

REACTIONS (3)
  - Osteoporosis [Not Recovered/Not Resolved]
  - Dementia Alzheimer^s type [Not Recovered/Not Resolved]
  - Dyspnoea [Recovering/Resolving]
